FAERS Safety Report 6801765-1 (Version None)
Quarter: 2010Q2

REPORT INFORMATION
  Report Type: 
  Country: None (occurrence: None)
  Receive Date: 20100629
  Receipt Date: 20100615
  Transmission Date: 20101027
  Serious: Yes (Disabling, Other)
  Sender: FDA-Public Use
  Company Number: PHHY2010US39024

PATIENT
  Sex: Female

DRUGS (7)
  1. RECLAST [Suspect]
     Dosage: UNK
     Dates: start: 20091201
  2. RECLAST [Suspect]
     Dosage: UNK
     Dates: start: 20100301
  3. CALCIUM CARBONATE [Concomitant]
     Dosage: UNK
  4. VITAMINS [Concomitant]
     Dosage: UNK
  5. ATENOLOL [Concomitant]
     Dosage: UNK
  6. THYROID SUPPLEMENTS [Concomitant]
  7. RADIATION [Concomitant]

REACTIONS (6)
  - FRACTURED SACRUM [None]
  - PAIN [None]
  - PELVIC FRACTURE [None]
  - UTERINE CANCER [None]
  - VAGINAL HAEMORRHAGE [None]
  - WALKING AID USER [None]
